FAERS Safety Report 4708805-4 (Version None)
Quarter: 2005Q3

REPORT INFORMATION
  Report Type: 
  Country: None (occurrence: None)
  Receive Date: 20050705
  Receipt Date: 20050627
  Transmission Date: 20060218
  Serious: Yes (Hospitalization)
  Sender: FDA-Public Use
  Company Number: ZONI002183

PATIENT
  Age: 22 Year
  Sex: Female

DRUGS (15)
  1. ZONISAMIDE [Suspect]
     Indication: EPILEPSY
     Dosage: SEE IMAGE
     Route: 048
     Dates: start: 20050118, end: 20050214
  2. ZONISAMIDE [Suspect]
     Indication: EPILEPSY
     Dosage: SEE IMAGE
     Route: 048
     Dates: start: 20050215, end: 20050403
  3. LEMONAMIN (HALOPERIDOL) [Concomitant]
  4. STADORF (SULTOPRIDE HYDROCHLORIDE) [Concomitant]
  5. PROTHIADEN [Concomitant]
  6. E-CYSTEN (L-CYSTEINE ETHYL ESTER, HYDROCHLORIDE) [Concomitant]
  7. BICAMOL (BIPERIDEN HYDROCHLORIDE) [Concomitant]
  8. PAKISONAL (TRIHEXYPHENIDYL HYDROCHLORIDE) [Concomitant]
  9. GLORIAMIN (GLORIAMIN) [Concomitant]
  10. RISPERDAL [Concomitant]
  11. LEVOTOMIN (LEVOMEPROMAZINE MALEATE) [Concomitant]
  12. TASMOLIN (BIPERIDEN) [Concomitant]
  13. NITRAZEPAM [Concomitant]
  14. LOSIZOPILON (ZOTEPINE) [Concomitant]
  15. RIVOTRIL (CLONAZEPAM) [Concomitant]

REACTIONS (8)
  - COUGH [None]
  - DECUBITUS ULCER [None]
  - DRUG HYPERSENSITIVITY [None]
  - NASOPHARYNGITIS [None]
  - NEUROLOGICAL SYMPTOM [None]
  - PNEUMONIA [None]
  - PYREXIA [None]
  - TOXIC SKIN ERUPTION [None]
